FAERS Safety Report 15325071 (Version 1)
Quarter: 2018Q3

REPORT INFORMATION
  Report Type: Spontaneous
  Country: US (occurrence: US)
  Receive Date: 20180822
  Receipt Date: 20180822
  Transmission Date: 20181010
  Serious: Yes (Hospitalization)
  Sender: FDA-Public Use
  Company Number: None

PATIENT
  Age: 74 Year
  Sex: Female

DRUGS (1)
  1. REVLIMID [Suspect]
     Active Substance: LENALIDOMIDE
     Indication: LYMPHOMA
     Route: 048
     Dates: start: 20180726

REACTIONS (4)
  - Rash pruritic [None]
  - Pain of skin [None]
  - Off label use [None]
  - Therapy cessation [None]

NARRATIVE: CASE EVENT DATE: 20180812
